FAERS Safety Report 9373522 (Version 1)
Quarter: 2013Q2

REPORT INFORMATION
  Report Type: Report from Study
  Country: TR (occurrence: TR)
  Receive Date: 20130627
  Receipt Date: 20130627
  Transmission Date: 20140414
  Serious: Yes (Death, Hospitalization, Other)
  Sender: FDA-Public Use
  Company Number: PHHY2013TR041297

PATIENT
  Age: 8 Year
  Sex: Male
  Weight: 12 kg

DRUGS (2)
  1. EXJADE [Suspect]
     Indication: APLASTIC ANAEMIA
     Dosage: 125 MG
     Route: 048
     Dates: start: 2012
  2. EUTHYROX [Concomitant]
     Dosage: 50 MG, UNK
     Route: 048

REACTIONS (3)
  - Respiratory arrest [Fatal]
  - Pyrexia [Fatal]
  - Hepatic enzyme increased [Recovering/Resolving]
